FAERS Safety Report 8303994-7 (Version None)
Quarter: 2012Q2

REPORT INFORMATION
  Report Type: 
  Country: None (occurrence: None)
  Receive Date: 20120423
  Receipt Date: 20120413
  Transmission Date: 20120825
  Serious: Yes (Other)
  Sender: FDA-Public Use
  Company Number: US-PFIZER INC-2012057111

PATIENT
  Sex: Male
  Weight: 68.027 kg

DRUGS (5)
  1. NEXIUM [Concomitant]
     Indication: ABDOMINAL PAIN UPPER
     Dosage: 40 MG, 1X/DAY
  2. LATANOPROST [Suspect]
     Indication: GLAUCOMA
     Dosage: 1 DROP EACH EYE DAILY
     Dates: start: 20111223, end: 20111224
  3. LATANOPROST [Suspect]
     Dosage: 1 DROP EACH EYE DAILY
     Dates: start: 20120125, end: 20120130
  4. NEXIUM [Concomitant]
     Indication: GASTROOESOPHAGEAL REFLUX DISEASE
  5. FINASTERIDE [Concomitant]
     Indication: PROSTATIC DISORDER
     Dosage: 5 MG, 1X/DAY

REACTIONS (1)
  - HEADACHE [None]
